FAERS Safety Report 10471332 (Version 1)
Quarter: 2014Q3

REPORT INFORMATION
  Report Type: Report from Study
  Country: BR (occurrence: BR)
  Receive Date: 20140923
  Receipt Date: 20140923
  Transmission Date: 20150326
  Serious: Yes (Other)
  Sender: FDA-Public Use
  Company Number: BR-ABBVIE-14P-020-1284676-00

PATIENT
  Age: 62 Year
  Sex: Male
  Weight: 96 kg

DRUGS (5)
  1. HUMIRA [Suspect]
     Active Substance: ADALIMUMAB
     Indication: PSORIASIS
     Route: 058
     Dates: start: 201203
  2. FOLIC ACID. [Concomitant]
     Active Substance: FOLIC ACID
     Indication: PRURITUS
  3. FOLIC ACID. [Concomitant]
     Active Substance: FOLIC ACID
     Indication: ANTICOAGULANT THERAPY
     Dosage: 5MG ON SATURDAYS AND 5MG ON SUNDAYS
     Route: 048
     Dates: start: 20140708
  4. ANESTHETICS [Suspect]
     Active Substance: UNSPECIFIED INGREDIENT
     Indication: PRODUCT USED FOR UNKNOWN INDICATION
  5. MESALAZINE [Concomitant]
     Active Substance: MESALAMINE
     Indication: ANTICOAGULANT THERAPY
     Dosage: EXCEPT ON THURSDAYS
     Route: 048
     Dates: start: 201407

REACTIONS (5)
  - Dermatitis allergic [Recovered/Resolved]
  - Tooth loss [Recovered/Resolved]
  - Accident at work [Recovered/Resolved]
  - Mental disorder [Unknown]
  - Blood glucose decreased [Unknown]

NARRATIVE: CASE EVENT DATE: 2012
